FAERS Safety Report 25571933 (Version 1)
Quarter: 2025Q3

REPORT INFORMATION
  Report Type: Spontaneous
  Country: US (occurrence: US)
  Receive Date: 20250717
  Receipt Date: 20250717
  Transmission Date: 20251021
  Serious: No
  Sender: TARO
  Company Number: US-TARO PHARMACEUTICALS USA INC.-2025TAR00368

PATIENT

DRUGS (2)
  1. BETAMETHASONE VALERATE [Suspect]
     Active Substance: BETAMETHASONE VALERATE
     Indication: Skin irritation
     Dosage: 100 MILLIGRAM, 2X/DAY ON SCALP
     Route: 061
     Dates: start: 20250117
  2. BETAMETHASONE VALERATE [Suspect]
     Active Substance: BETAMETHASONE VALERATE
     Indication: Pruritus
     Dosage: 100 MG,1X/DAY, ON SCALP
     Route: 061

REACTIONS (2)
  - Device breakage [Unknown]
  - Product dose omission issue [Unknown]
